FAERS Safety Report 7560241-1 (Version None)
Quarter: 2011Q2

REPORT INFORMATION
  Report Type: 
  Country: None (occurrence: None)
  Receive Date: 20110614
  Receipt Date: 20110601
  Transmission Date: 20111010
  Serious: Yes (Hospitalization, Congenital Anomaly, Other)
  Sender: FDA-Public Use
  Company Number: 2011MA005979

PATIENT
  Age: 1 Day
  Sex: Female

DRUGS (2)
  1. LORAZEPAM [Suspect]
  2. FLUOXETINE [Concomitant]

REACTIONS (19)
  - APGAR SCORE LOW [None]
  - AGITATION [None]
  - IRRITABILITY [None]
  - ENTERITIS NECROTICANS [None]
  - DRUG WITHDRAWAL SYNDROME NEONATAL [None]
  - TREMOR [None]
  - RESPIRATORY DISORDER [None]
  - RESPIRATORY RATE INCREASED [None]
  - URINARY TRACT INFECTION BACTERIAL [None]
  - FLOPPY INFANT [None]
  - KLEBSIELLA INFECTION [None]
  - MATERNAL DRUGS AFFECTING FOETUS [None]
  - MUSCLE TIGHTNESS [None]
  - AREFLEXIA [None]
  - INTRAUTERINE INFECTION [None]
  - CONGENITAL PNEUMONIA [None]
  - UNRESPONSIVE TO STIMULI [None]
  - ANXIETY [None]
  - GASTROOESOPHAGEAL REFLUX DISEASE [None]
